FAERS Safety Report 9454464 (Version 1)
Quarter: 2013Q3

REPORT INFORMATION
  Report Type: Spontaneous
  Country: IL (occurrence: IL)
  Receive Date: 20130812
  Receipt Date: 20130812
  Transmission Date: 20140515
  Serious: Yes (Hospitalization)
  Sender: FDA-Public Use
  Company Number: IL-PERRIGO-13IL007990

PATIENT
  Age: 13 Year
  Sex: 0
  Weight: 53 kg

DRUGS (2)
  1. ACETAMINOPHEN 650MG ER 544 [Suspect]
     Indication: DYSMENORRHOEA
     Dosage: 1500MG
     Route: 048
  2. DIPYRONE [Suspect]
     Indication: DYSMENORRHOEA
     Dosage: 5000MG
     Route: 048

REACTIONS (5)
  - Renal failure acute [Recovered/Resolved]
  - Flank pain [Recovered/Resolved]
  - Myalgia [Recovered/Resolved]
  - Arthralgia [Recovered/Resolved]
  - Fluid intake reduced [Recovered/Resolved]
